FAERS Safety Report 10785395 (Version 2)
Quarter: 2015Q2

REPORT INFORMATION
  Report Type: Spontaneous
  Country: FR (occurrence: None)
  Receive Date: 20150209
  Receipt Date: 20150423
  Transmission Date: 20150821
  Serious: Yes (Death)
  Sender: FDA-Public Use
  Company Number: FR-2015-0169

PATIENT
  Age: 5 Month
  Sex: Female
  Weight: 5.91 kg

DRUGS (1)
  1. HEMANGIOL [Suspect]
     Active Substance: PROPRANOLOL HYDROCHLORIDE
     Indication: INFANTILE HAEMANGIOMA
     Route: 048
     Dates: start: 20141216

REACTIONS (8)
  - Enterobacter test positive [None]
  - Cardio-respiratory arrest [None]
  - Sudden infant death syndrome [None]
  - Blood pressure decreased [None]
  - Intentional product misuse [None]
  - Congestive cardiomyopathy [None]
  - Hypotonia [None]
  - Oesophageal disorder [None]

NARRATIVE: CASE EVENT DATE: 20150113
